APPROVED DRUG PRODUCT: AUGTYRO
Active Ingredient: REPOTRECTINIB
Strength: 40MG
Dosage Form/Route: CAPSULE;ORAL
Application: N218213 | Product #001
Applicant: BRISTOL MYERS SQUIBB CO
Approved: Nov 15, 2023 | RLD: Yes | RS: Yes | Type: RX

PATENTS:
Patent 12310968 | Expires: Jul 20, 2036
Patent 11452725 | Expires: Jul 24, 2036
Patent 11452725 | Expires: Jul 24, 2036
Patent RE50634 | Expires: Jan 23, 2035
Patent 10294242 | Expires: Jul 5, 2036
Patent 12187739 | Expires: Jul 5, 2036

EXCLUSIVITY:
Code: NCE | Date: Nov 15, 2028
Code: ODE-455 | Date: Nov 15, 2030
Code: ODE-483 | Date: Jun 13, 2031